FAERS Safety Report 13900425 (Version 1)
Quarter: 2017Q3

REPORT INFORMATION
  Report Type: Spontaneous
  Country: US (occurrence: None)
  Receive Date: 20170824
  Receipt Date: 20170824
  Transmission Date: 20171127
  Serious: Yes (Hospitalization)
  Sender: FDA-Public Use
  Company Number: None

PATIENT
  Age: 8 Year
  Sex: Male
  Weight: 26.5 kg

DRUGS (8)
  1. DEXAMETHASONE. [Suspect]
     Active Substance: DEXAMETHASONE
     Dates: end: 20170702
  2. DOXORUBICIN HYDROCHLORIDE. [Suspect]
     Active Substance: DOXORUBICIN HYDROCHLORIDE
     Dates: end: 20170626
  3. CYCLOPHASPHAMIDE [Suspect]
     Active Substance: CYCLOPHOSPHAMIDE
     Dates: end: 20170717
  4. METHOTREXATE. [Suspect]
     Active Substance: METHOTREXATE
     Dates: end: 20170724
  5. THIOGUANINE (6-TG) [Suspect]
     Active Substance: THIOGUANINE ANHYDROUS
     Dates: end: 20170730
  6. VINCRISTINE SULFATE. [Suspect]
     Active Substance: VINCRISTINE SULFATE
     Dates: end: 20170807
  7. CYTARABINE. [Suspect]
     Active Substance: CYTARABINE
     Dates: end: 20170727
  8. ONCASPAR [Suspect]
     Active Substance: PEGASPARGASE
     Dates: end: 20170731

REACTIONS (2)
  - Seizure [None]
  - Respiratory depression [None]

NARRATIVE: CASE EVENT DATE: 20170816
